FAERS Safety Report 17985661 (Version 3)
Quarter: 2020Q3

REPORT INFORMATION
  Report Type: Spontaneous
  Country: TN (occurrence: TN)
  Receive Date: 20200706
  Receipt Date: 20200731
  Transmission Date: 20201103
  Serious: Yes (Death, Other)
  Sender: FDA-Public Use
  Company Number: TN-JNJFOC-20200637643

PATIENT
  Age: 74 Year
  Sex: Male

DRUGS (1)
  1. ZYTIGA [Suspect]
     Active Substance: ABIRATERONE ACETATE
     Indication: PRODUCT USED FOR UNKNOWN INDICATION
     Dosage: RECEIVED FOR 9 TO 12 MONTHS?I TABLET DURING BREAKFAST WITHOUT TABLETS.
     Route: 048

REACTIONS (3)
  - Meningitis [Unknown]
  - Death [Fatal]
  - Drug ineffective [Unknown]
